FAERS Safety Report 7051517-5 (Version None)
Quarter: 2010Q4

REPORT INFORMATION
  Report Type: 
  Country: None (occurrence: None)
  Receive Date: 20101019
  Receipt Date: 20101006
  Transmission Date: 20110411
  Serious: Yes (Hospitalization)
  Sender: FDA-Public Use
  Company Number: GB-CELGENEUS-167-21880-10090307

PATIENT
  Sex: Female

DRUGS (9)
  1. CC-5013 [Suspect]
     Indication: MULTIPLE MYELOMA
     Route: 048
     Dates: start: 20090309
  2. CC-5013 [Suspect]
     Route: 048
     Dates: start: 20100816, end: 20100901
  3. DEXAMETHASONE [Suspect]
     Indication: MULTIPLE MYELOMA
     Route: 065
     Dates: start: 20090309
  4. DEXAMETHASONE [Suspect]
     Route: 065
     Dates: start: 20100816, end: 20100901
  5. ASPIRIN [Concomitant]
     Route: 065
     Dates: start: 20090309
  6. SIMVASTATIN [Concomitant]
     Route: 065
     Dates: start: 20040101
  7. AMLODIPINE [Concomitant]
     Indication: HYPERTENSION
     Route: 065
     Dates: start: 20030101
  8. RANITIDINE [Concomitant]
     Indication: PROPHYLAXIS
     Route: 065
     Dates: start: 20090601
  9. TRAMADOL HCL [Concomitant]
     Route: 065
     Dates: start: 20090614

REACTIONS (2)
  - ARTHRITIS BACTERIAL [None]
  - PNEUMONIA [None]
